FAERS Safety Report 6908336-7 (Version None)
Quarter: 2010Q3

REPORT INFORMATION
  Report Type: 
  Country: None (occurrence: None)
  Receive Date: 20100803
  Receipt Date: 20100713
  Transmission Date: 20110219
  Serious: Yes (Other)
  Sender: FDA-Public Use
  Company Number: US-000068

PATIENT
  Sex: Male

DRUGS (3)
  1. ZENPEP [Suspect]
     Indication: PANCREATITIS ACUTE
     Dosage: (10,000 ORAL)
     Route: 048
     Dates: start: 20100609, end: 20100713
  2. ZANTAC /00550802/ [Concomitant]
  3. UROXATRAL [Concomitant]

REACTIONS (1)
  - BLOOD GLUCOSE INCREASED [None]
